FAERS Safety Report 5909223-3 (Version None)
Quarter: 2008Q4

REPORT INFORMATION
  Report Type: 
  Country: None (occurrence: None)
  Receive Date: 20081006
  Receipt Date: 20080930
  Transmission Date: 20090506
  Serious: Yes (Death, Hospitalization, Other)
  Sender: FDA-Public Use
  Company Number: PHHY2008CA07279

PATIENT
  Age: 66 Year
  Sex: Male

DRUGS (14)
  1. RASILEZ [Suspect]
     Dosage: 300 MG/DAY
     Route: 048
     Dates: start: 20080207
  2. NORVASC [Concomitant]
     Dosage: 5 MG, QOD
     Route: 048
  3. METOPROLOL TARTRATE [Concomitant]
     Dosage: 10 MG BID
     Route: 048
  4. PLAVIX [Concomitant]
     Dosage: 75 MG, QOD
     Route: 048
  5. ASPIRIN 10GR TIMED DISINTEGRATION TAB [Concomitant]
     Dosage: 325 MG
  6. TELMISARTAN [Concomitant]
     Dosage: 80 MG, QD
  7. NIZATIDINE [Concomitant]
  8. FLURINOL [Concomitant]
  9. EZETROL [Concomitant]
     Dosage: 10 MG, QD
  10. CALCIUM CARBONATE [Concomitant]
  11. HUMULIN [Concomitant]
  12. VOLTAREN                           /00372303/ [Concomitant]
  13. AGGRASTAT [Concomitant]
  14. RANITIDINE [Concomitant]

REACTIONS (25)
  - ACUTE MYOCARDIAL INFARCTION [None]
  - ANGINA UNSTABLE [None]
  - ANGIOEDEMA [None]
  - ARTERIAL OCCLUSIVE DISEASE [None]
  - BLOOD CREATINE PHOSPHOKINASE INCREASED [None]
  - CARDIAC ARREST [None]
  - CARDIAC FAILURE [None]
  - CEREBROVASCULAR ACCIDENT [None]
  - CONVULSION [None]
  - DYSPNOEA [None]
  - HAEMORRHAGE [None]
  - HEPATIC NECROSIS [None]
  - HYPOTENSION [None]
  - ISCHAEMIA [None]
  - LOCAL SWELLING [None]
  - MUSCULOSKELETAL STIFFNESS [None]
  - PHARYNGEAL OEDEMA [None]
  - PNEUMONIA [None]
  - PRODUCTIVE COUGH [None]
  - PULMONARY OEDEMA [None]
  - PYREXIA [None]
  - RHONCHI [None]
  - SWOLLEN TONGUE [None]
  - THROAT TIGHTNESS [None]
  - VOMITING [None]
